FAERS Safety Report 10329133 (Version 7)
Quarter: 2015Q2

REPORT INFORMATION
  Report Type: Spontaneous
  Country: US (occurrence: US)
  Receive Date: 20140721
  Receipt Date: 20150526
  Transmission Date: 20150821
  Serious: Yes (Hospitalization, Disabling, Other)
  Sender: FDA-Public Use
  Company Number: US-IPSEN BIOPHARMACEUTICALS, INC.-2014-3470

PATIENT
  Age: 57 Year
  Sex: Female
  Weight: 63 kg

DRUGS (5)
  1. DYSPORT [Suspect]
     Active Substance: ABOBOTULINUMTOXINA
     Indication: SKIN WRINKLING
     Dosage: 105 UNITS
     Route: 065
     Dates: start: 20140624, end: 20140624
  2. DYSPORT [Suspect]
     Active Substance: ABOBOTULINUMTOXINA
     Indication: SKIN WRINKLING
  3. DYSPORT [Suspect]
     Active Substance: ABOBOTULINUMTOXINA
     Indication: PRODUCT USE ISSUE
  4. DYSPORT [Suspect]
     Active Substance: ABOBOTULINUMTOXINA
     Indication: SKIN WRINKLING
  5. VITAMIN C CREAM [Concomitant]
     Indication: PRODUCT USED FOR UNKNOWN INDICATION
     Dosage: NOT REPORTED
     Route: 065

REACTIONS (23)
  - Fatigue [Recovering/Resolving]
  - Rash erythematous [Recovered/Resolved]
  - Muscle tightness [Not Recovered/Not Resolved]
  - Polyneuropathy [Not Recovered/Not Resolved]
  - Blindness [Recovered/Resolved]
  - Vision blurred [Unknown]
  - Injection site paraesthesia [Not Recovered/Not Resolved]
  - Limb discomfort [Not Recovered/Not Resolved]
  - Insomnia [Recovering/Resolving]
  - Heart rate normal [Recovering/Resolving]
  - Chest discomfort [Recovering/Resolving]
  - Weight decreased [Unknown]
  - Overdose [Unknown]
  - Diarrhoea [Recovering/Resolving]
  - Injection site induration [Recovered/Resolved]
  - Dyspnoea [Not Recovered/Not Resolved]
  - Somnolence [Recovered/Resolved]
  - Blepharospasm [Unknown]
  - Pain [Recovering/Resolving]
  - Blood pressure fluctuation [Recovering/Resolving]
  - Nausea [Unknown]
  - Injection site pain [Recovered/Resolved]
  - Muscular weakness [Recovering/Resolving]

NARRATIVE: CASE EVENT DATE: 2014
